FAERS Safety Report 9934441 (Version 2)
Quarter: 2014Q1

REPORT INFORMATION
  Report Type: Spontaneous
  Country: DK (occurrence: DK)
  Receive Date: 20140228
  Receipt Date: 20140228
  Transmission Date: 20141002
  Serious: Yes (Disabling)
  Sender: FDA-Public Use
  Company Number: DK-FRI-1000045730

PATIENT
  Age: 43 Year
  Sex: Female
  Weight: 75 kg

DRUGS (5)
  1. CITALOPRAM [Suspect]
     Indication: DEPRESSION
     Dosage: 20 MG
     Route: 048
     Dates: start: 20121220, end: 20130517
  2. KALEORID [Concomitant]
     Indication: HYPOKALAEMIA
     Dates: start: 20121121
  3. PINEX [Concomitant]
     Indication: PAIN
     Dates: start: 20121202
  4. PLAQUENIL [Concomitant]
     Indication: SYSTEMIC LUPUS ERYTHEMATOSUS
     Dates: start: 20121017
  5. PREDNISOLON [Concomitant]
     Indication: SYSTEMIC LUPUS ERYTHEMATOSUS
     Dates: start: 20121220

REACTIONS (4)
  - Oromandibular dystonia [Not Recovered/Not Resolved]
  - Dyskinesia [Not Recovered/Not Resolved]
  - Trismus [Not Recovered/Not Resolved]
  - Dysphonia [Not Recovered/Not Resolved]
